FAERS Safety Report 5881074-8 (Version None)
Quarter: 2008Q3

REPORT INFORMATION
  Report Type: 
  Country: None (occurrence: None)
  Receive Date: 20080912
  Receipt Date: 20080618
  Transmission Date: 20090109
  Serious: No
  Sender: FDA-Public Use
  Company Number: US-ABBOTT-08P-163-0458193-00

PATIENT
  Sex: Male
  Weight: 59.928 kg

DRUGS (3)
  1. HUMIRA [Suspect]
     Indication: PSORIATIC ARTHROPATHY
     Route: 058
     Dates: start: 20071101, end: 20080616
  2. HUMIRA [Suspect]
     Route: 058
     Dates: start: 20080617
  3. BP MEDICATION [Concomitant]
     Indication: HYPERTENSION
     Route: 048

REACTIONS (2)
  - FEELING ABNORMAL [None]
  - PAIN [None]
